FAERS Safety Report 21209479 (Version 1)
Quarter: 2022Q3

REPORT INFORMATION
  Report Type: Report from Study
  Country: CN (occurrence: CN)
  Receive Date: 20220813
  Receipt Date: 20220813
  Transmission Date: 20221026
  Serious: Yes (Hospitalization, Other)
  Sender: FDA-Public Use
  Company Number: CN-Nexus Pharma-000127

PATIENT

DRUGS (5)
  1. BUSULFAN [Suspect]
     Active Substance: BUSULFAN
     Indication: Acute myeloid leukaemia
     Dosage: 3.2 MG/KG/DAY I.V. ON DAYS -6 TO -4
  2. DECITABINE [Suspect]
     Active Substance: DECITABINE
     Indication: Acute myeloid leukaemia
     Dosage: 20 MG/M2 /DAY I.V. ON DAYS -11 TO -7
  3. CYTARABINE [Suspect]
     Active Substance: CYTARABINE
     Indication: Acute myeloid leukaemia
     Dosage: 1.5 G/M2 I.V. EVERY 12 H ON DAYS -9 TO -7
  4. CYCLOPHOSPHAMIDE [Suspect]
     Active Substance: CYCLOPHOSPHAMIDE
     Indication: Acute myeloid leukaemia
     Dosage: 1.8 G/M2 /DAY I.V. ON DAYS -3 AND -2
  5. SEMUSTINE [Suspect]
     Active Substance: SEMUSTINE
     Indication: Acute myeloid leukaemia
     Dosage: 250 MG/M2 /DAY ORALLY ON DAY -1
     Route: 048

REACTIONS (2)
  - Interstitial lung disease [Unknown]
  - Cytomegalovirus infection [Unknown]
